FAERS Safety Report 6862135-3 (Version None)
Quarter: 2010Q3

REPORT INFORMATION
  Report Type: 
  Country: None (occurrence: None)
  Receive Date: 20100719
  Receipt Date: 20100702
  Transmission Date: 20110219
  Serious: Yes (Hospitalization)
  Sender: FDA-Public Use
  Company Number: 2010002280

PATIENT
  Age: 56 Year
  Sex: Male

DRUGS (19)
  1. ERLOTINIB HYDROCHLORIDE [Suspect]
     Indication: HEPATIC NEOPLASM MALIGNANT
     Dosage: 150 MG, QD, ORAL
     Route: 048
     Dates: start: 20090402, end: 20100527
  2. BEVACIZUMAB [Suspect]
     Indication: HEPATIC NEOPLASM MALIGNANT
     Dosage: 890 MG, INTRAVENOUS
     Route: 042
     Dates: start: 20090402, end: 20100511
  3. IMDUR [Concomitant]
  4. ASPIRIN [Concomitant]
  5. NITROGLYCERN [Concomitant]
  6. ULTRAM (TRAMADOLOL HYDROCHLORIDE) [Concomitant]
  7. COMBIVENT [Concomitant]
  8. ALBUTEROL [Concomitant]
  9. NEURONTIN [Concomitant]
  10. SPIRIVA [Concomitant]
  11. PROPRANOLOL [Concomitant]
  12. MINOCYCLINE HCL [Concomitant]
  13. LISINOPRIL (LISNIOPRIL) [Concomitant]
  14. ADEFOVIR DIPIVOXIL (ADEFOVIR DIPIVOXIL) [Concomitant]
  15. PROTONIX [Concomitant]
  16. PEPCID [Concomitant]
  17. XANAX [Concomitant]
  18. UREA (UREA) [Concomitant]
  19. ELAVIL [Concomitant]

REACTIONS (3)
  - ATELECTASIS [None]
  - HYPOTENSION [None]
  - TACHYCARDIA [None]
